FAERS Safety Report 22325013 (Version 8)
Quarter: 2023Q4

REPORT INFORMATION
  Report Type: Report from Study
  Country: US (occurrence: None)
  Receive Date: 20230516
  Receipt Date: 20231024
  Transmission Date: 20240110
  Serious: Yes (Other)
  Sender: FDA-Public Use
  Company Number: US-ROCHE-3348677

PATIENT
  Age: 70 Year
  Sex: Female

DRUGS (20)
  1. RANIBIZUMAB [Suspect]
     Active Substance: RANIBIZUMAB
     Indication: Diabetic retinal oedema
     Dosage: DOSE: 10 MG/ML, FREQUENCY: EVERY 24 WEEKS. MOST RECENT DOSE 100 MG/ML PRIOR TO AE ON 17/JAN/2023
     Route: 050
     Dates: start: 20210511
  2. RANIBIZUMAB [Suspect]
     Active Substance: RANIBIZUMAB
  3. RANIBIZUMAB [Suspect]
     Active Substance: RANIBIZUMAB
  4. RANIBIZUMAB [Suspect]
     Active Substance: RANIBIZUMAB
  5. RANIBIZUMAB [Suspect]
     Active Substance: RANIBIZUMAB
  6. RANIBIZUMAB [Concomitant]
     Active Substance: RANIBIZUMAB
     Indication: Diabetic retinal oedema
     Dosage: 6 MG/ML?ON 21/MAR/2023, SHE RECEIVED MOST RECENT DOSE OF STUDY DRUG PRIOR TO AE: 0.3 MG/ML
     Route: 050
     Dates: start: 20210708
  7. RANIBIZUMAB [Concomitant]
     Active Substance: RANIBIZUMAB
     Dosage: 0.5 MG/ML
     Route: 050
     Dates: start: 20230711, end: 20230711
  8. RANIBIZUMAB [Concomitant]
     Active Substance: RANIBIZUMAB
     Dosage: 0.5 MG/ML
     Route: 050
     Dates: start: 20231017, end: 20231017
  9. METFORMIN [Concomitant]
     Active Substance: METFORMIN HYDROCHLORIDE
     Indication: Type 2 diabetes mellitus
     Dates: start: 2001
  10. GLYBURIDE [Concomitant]
     Active Substance: GLYBURIDE
     Indication: Type 2 diabetes mellitus
  11. AMLODIPINE [Concomitant]
     Active Substance: AMLODIPINE BESYLATE
     Indication: Hypertension
  12. FUROSEMIDE [Concomitant]
     Active Substance: FUROSEMIDE
     Indication: Oedema
  13. FLUOXETINE [Concomitant]
     Active Substance: FLUOXETINE HYDROCHLORIDE
     Indication: Depression
  14. LEVEMIR [Concomitant]
     Active Substance: INSULIN DETEMIR
     Indication: Type 2 diabetes mellitus
  15. LOSARTAN [Concomitant]
     Active Substance: LOSARTAN
     Indication: Hypertension
     Dates: start: 20220816
  16. ATENOLOL [Concomitant]
     Active Substance: ATENOLOL
     Indication: Hypertension
     Dates: start: 20220816
  17. CHLORTHALIDONE [Concomitant]
     Active Substance: CHLORTHALIDONE
     Indication: Hypertension
     Dosage: MEDICATION DOSE: 25 MG/ML
     Route: 048
     Dates: start: 20230506
  18. HYDRALAZINE [Concomitant]
     Active Substance: HYDRALAZINE HYDROCHLORIDE
     Indication: Hypertension
     Dosage: MEDICATION DOSE :10 MG/ML
     Route: 048
     Dates: start: 20230425
  19. CORTISONE [Concomitant]
     Active Substance: CORTISONE
     Dates: start: 202307, end: 202307
  20. ARTIFICIAL TEARS [Concomitant]
     Indication: Dry eye
     Dates: start: 20230828

REACTIONS (2)
  - Device issue [Unknown]
  - No adverse event [Unknown]

NARRATIVE: CASE EVENT DATE: 20230509
